FAERS Safety Report 24019474 (Version 3)
Quarter: 2024Q3

REPORT INFORMATION
  Report Type: Report from Study
  Country: US (occurrence: US)
  Receive Date: 20240627
  Receipt Date: 20240715
  Transmission Date: 20241016
  Serious: Yes (Hospitalization, Other)
  Sender: EXELIXIS
  Company Number: US-EXELIXIS-CABO-24077822

PATIENT
  Age: 71 Year
  Sex: Female

DRUGS (19)
  1. CABOMETYX [Suspect]
     Active Substance: CABOZANTINIB S-MALATE
     Indication: Neuroendocrine tumour of the lung
     Dosage: 40 MG, QD
     Dates: start: 20240515
  2. CABOMETYX [Suspect]
     Active Substance: CABOZANTINIB S-MALATE
     Indication: Metastases to liver
     Dosage: 40 MG, QD
  3. CABOMETYX [Suspect]
     Active Substance: CABOZANTINIB S-MALATE
     Indication: Metastasis
  4. GABAPENTIN [Concomitant]
     Active Substance: GABAPENTIN
  5. QUESTRAN [Concomitant]
     Active Substance: CHOLESTYRAMINE
  6. PROCHLORPERAZINE [Concomitant]
     Active Substance: PROCHLORPERAZINE
  7. PANTOPRAZOLE [Concomitant]
     Active Substance: PANTOPRAZOLE
  8. ONDANSETRON [Concomitant]
     Active Substance: ONDANSETRON
  9. NYSTATIN [Concomitant]
     Active Substance: NYSTATIN
  10. NORVASC [Concomitant]
     Active Substance: AMLODIPINE BESYLATE
  11. NARCAN [Concomitant]
     Active Substance: NALOXONE HYDROCHLORIDE
  12. VITAMINS [Concomitant]
     Active Substance: VITAMINS
  13. MORPHINE [Concomitant]
     Active Substance: MORPHINE
  14. LORAZEPAM [Concomitant]
     Active Substance: LORAZEPAM
  15. LORATADINE [Concomitant]
     Active Substance: LORATADINE
  16. LEVOTHYROXINE [Concomitant]
     Active Substance: LEVOTHYROXINE\LEVOTHYROXINE SODIUM
  17. JARDIANCE [Concomitant]
     Active Substance: EMPAGLIFLOZIN
  18. GLIPIZIDE [Concomitant]
     Active Substance: GLIPIZIDE
  19. ACETAMINOPHEN [Concomitant]
     Active Substance: ACETAMINOPHEN

REACTIONS (10)
  - Hospitalisation [Unknown]
  - Malignant neoplasm progression [Recovering/Resolving]
  - Haemorrhoidal haemorrhage [Recovering/Resolving]
  - Blood pressure increased [Recovering/Resolving]
  - Asthenia [Not Recovered/Not Resolved]
  - Fatigue [Recovering/Resolving]
  - Muscle spasms [Unknown]
  - Neoplasm [Not Recovered/Not Resolved]
  - Poor quality sleep [Unknown]
  - Off label use [Unknown]

NARRATIVE: CASE EVENT DATE: 20240501
